FAERS Safety Report 21070856 (Version 3)
Quarter: 2022Q3

REPORT INFORMATION
  Report Type: Spontaneous
  Country: US (occurrence: US)
  Receive Date: 20220712
  Receipt Date: 20220920
  Transmission Date: 20221027
  Serious: No
  Sender: FDA-Public Use
  Company Number: US-PFIZER INC-202200944228

PATIENT
  Age: 69 Year
  Sex: Female
  Weight: 74.84 kg

DRUGS (2)
  1. PAXLOVID [Suspect]
     Active Substance: NIRMATRELVIR\RITONAVIR
     Indication: COVID-19 treatment
     Dosage: [PF-07321332 300 MG]/[RITONAVIR 100 MG]; 2X/DAY
     Route: 048
  2. SYNTHROID [Concomitant]
     Active Substance: LEVOTHYROXINE SODIUM
     Indication: Thyroid disorder
     Dosage: 112 MG, 1X/DAY
     Route: 048

REACTIONS (4)
  - Eye pain [Recovering/Resolving]
  - Ear pain [Recovering/Resolving]
  - COVID-19 [Unknown]
  - Disease recurrence [Unknown]
